FAERS Safety Report 8389775-7 (Version None)
Quarter: 2012Q2

REPORT INFORMATION
  Report Type: 
  Country: None (occurrence: None)
  Receive Date: 20120529
  Receipt Date: 20120524
  Transmission Date: 20120825
  Serious: Yes (Other)
  Sender: FDA-Public Use
  Company Number: PHEH2012US010726

PATIENT

DRUGS (1)
  1. RECLAST [Suspect]
     Dosage: UNK UKN, UNK
     Route: 042
     Dates: start: 20110316

REACTIONS (8)
  - PARALYSIS [None]
  - OSTEOPOROSIS [None]
  - BONE PAIN [None]
  - MOBILITY DECREASED [None]
  - DYSSTASIA [None]
  - ARTHRALGIA [None]
  - INFLUENZA LIKE ILLNESS [None]
  - OSTEOPENIA [None]
